FAERS Safety Report 13964448 (Version 2)
Quarter: 2017Q3

REPORT INFORMATION
  Report Type: Spontaneous
  Country: DE (occurrence: DE)
  Receive Date: 20170913
  Receipt Date: 20170921
  Transmission Date: 20171128
  Serious: Yes (Other)
  Sender: FDA-Public Use
  Company Number: DE-PFIZER INC-2017393936

PATIENT
  Age: 63 Year
  Sex: Male
  Weight: 119 kg

DRUGS (6)
  1. HEPARIN-RATIOPHARM [Suspect]
     Active Substance: HEPARIN SODIUM
     Dosage: UNK
  2. NOREPINEPHRINE. [Concomitant]
     Active Substance: NOREPINEPHRINE
     Dosage: UP TO 0.85 UG/KG/MIN (30H POST-OP)
  3. HEPARIN-RATIOPHARM [Suspect]
     Active Substance: HEPARIN SODIUM
     Dosage: UNK
  4. HEPARIN-RATIOPHARM [Suspect]
     Active Substance: HEPARIN SODIUM
     Dosage: 55000 IU, UNK
     Route: 042
  5. HEPARIN-RATIOPHARM [Suspect]
     Active Substance: HEPARIN SODIUM
     Dosage: UNK
  6. TRANEXAMIC ACID. [Suspect]
     Active Substance: TRANEXAMIC ACID
     Dosage: 2 G, TRANEXAMIC ACID 500 MG 5 ML

REACTIONS (3)
  - Acute kidney injury [Unknown]
  - Transaminases increased [Unknown]
  - Drug ineffective [Unknown]

NARRATIVE: CASE EVENT DATE: 20170829
